FAERS Safety Report 8104226-5 (Version None)
Quarter: 2012Q1

REPORT INFORMATION
  Report Type: 
  Country: None (occurrence: None)
  Receive Date: 20120201
  Receipt Date: 20120117
  Transmission Date: 20120608
  Serious: Yes (Other)
  Sender: FDA-Public Use
  Company Number: IN-WATSON-2012-01319

PATIENT
  Age: 24 Year
  Sex: Male

DRUGS (3)
  1. PREDNISOLONE [Suspect]
     Indication: TYPE 2 LEPRA REACTION
     Dosage: X2 YEARS
     Route: 065
  2. PREDNISOLONE [Suspect]
     Dosage: 20 MG, UNK
     Route: 065
  3. AZATHIOPRINE [Suspect]
     Indication: TYPE 2 LEPRA REACTION
     Dosage: ^BD^ X2 MONTHS THEN DISCONTINUED
     Route: 065

REACTIONS (2)
  - BONE MARROW FAILURE [None]
  - CHROMOBLASTOMYCOSIS [None]
